FAERS Safety Report 6914387-9 (Version None)
Quarter: 2010Q3

REPORT INFORMATION
  Report Type: 
  Country: None (occurrence: None)
  Receive Date: 20100803
  Receipt Date: 20100728
  Transmission Date: 20110219
  Serious: Yes (Death, Other)
  Sender: FDA-Public Use
  Company Number: 2010US003027

PATIENT
  Age: 19 Year
  Sex: Male

DRUGS (5)
  1. PROGRAF [Suspect]
     Indication: HEART TRANSPLANT
     Dosage: 5 MG,
     Dates: start: 20090803
  2. PREDNISOLONE [Concomitant]
  3. MYCOPHENOLATE MOFETIL [Concomitant]
  4. LOVASTATIN [Concomitant]
  5. OMEPRAZOLE [Concomitant]

REACTIONS (1)
  - MYOCARDIAL INFARCTION [None]
